FAERS Safety Report 25997060 (Version 1)
Quarter: 2025Q4

REPORT INFORMATION
  Report Type: Other
  Country: EU (occurrence: EU)
  Receive Date: 20251104
  Receipt Date: 20251104
  Transmission Date: 20260119
  Serious: Yes (Hospitalization, Other)
  Sender: GLENMARK
  Company Number: None

PATIENT
  Sex: Female

DRUGS (2)
  1. FULVESTRANT [Suspect]
     Active Substance: FULVESTRANT
     Indication: Breast neoplasm
     Dosage: 500 MILLIGRAM, EVERY 15 DAYS
     Route: 030
     Dates: start: 20250716
  2. ENOXAPARIN [Concomitant]
     Active Substance: ENOXAPARIN
     Indication: Pulmonary thrombosis
     Dosage: 100 MILLIGRAM, BID
     Route: 058
     Dates: start: 20250708

REACTIONS (4)
  - Syncope [Unknown]
  - Hypotension [Unknown]
  - Haematoma muscle [Unknown]
  - Contraindicated product administered [Unknown]

NARRATIVE: CASE EVENT DATE: 20250716
